FAERS Safety Report 19469104 (Version 5)
Quarter: 2021Q3

REPORT INFORMATION
  Report Type: Report from Study
  Country: RU (occurrence: RU)
  Receive Date: 20210628
  Receipt Date: 20210907
  Transmission Date: 20211014
  Serious: Yes (Hospitalization)
  Sender: FDA-Public Use
  Company Number: RU-CELGENEUS-RUS-20210507608

PATIENT
  Age: 43 Year
  Sex: Female

DRUGS (3)
  1. OZANIMOD. [Suspect]
     Active Substance: OZANIMOD
     Route: 048
     Dates: start: 2021, end: 20210528
  2. OZANIMOD. [Suspect]
     Active Substance: OZANIMOD
     Dosage: 1 MILLIGRAM
     Route: 048
     Dates: start: 2021, end: 20210528
  3. OZANIMOD. [Suspect]
     Active Substance: OZANIMOD
     Indication: RELAPSING MULTIPLE SCLEROSIS
     Dosage: 1 MILLIGRAM
     Route: 048
     Dates: start: 20170202

REACTIONS (1)
  - COVID-19 pneumonia [Recovered/Resolved]

NARRATIVE: CASE EVENT DATE: 20210527
